FAERS Safety Report 18334940 (Version 1)
Quarter: 2020Q4

REPORT INFORMATION
  Report Type: Spontaneous
  Country: DK (occurrence: DK)
  Receive Date: 20201001
  Receipt Date: 20201001
  Transmission Date: 20210113
  Serious: Yes (Other)
  Sender: FDA-Public Use
  Company Number: DK-LUPIN PHARMACEUTICALS INC.-2020-06664

PATIENT
  Age: 37 Year
  Sex: Female

DRUGS (2)
  1. CALCIUM [Suspect]
     Active Substance: CALCIUM
     Indication: HYPOPARATHYROIDISM
     Dosage: 1600 MILLIGRAM, QD
     Route: 048
  2. VITAMIN D [COLECALCIFEROL] [Suspect]
     Active Substance: CHOLECALCIFEROL
     Indication: HYPOPARATHYROIDISM
     Dosage: UNK (28 ALFACALCIDOL EQUIVALENT)
     Route: 048

REACTIONS (5)
  - Hypercalcaemia [Unknown]
  - Cervix dystocia [Unknown]
  - Pruritus [Unknown]
  - Normal newborn [Unknown]
  - Exposure during pregnancy [Unknown]
